FAERS Safety Report 20416858 (Version 3)
Quarter: 2022Q1

REPORT INFORMATION
  Report Type: Spontaneous
  Country: US (occurrence: US)
  Receive Date: 20220202
  Receipt Date: 20220224
  Transmission Date: 20220423
  Serious: Yes (Other)
  Sender: FDA-Public Use
  Company Number: US-PFIZER INC-202200121414

PATIENT
  Age: 74 Year
  Sex: Female
  Weight: 61.23 kg

DRUGS (1)
  1. PREMARIN [Suspect]
     Active Substance: ESTROGENS, CONJUGATED
     Indication: Atrophic vulvovaginitis
     Dosage: 1 G, DAILY
     Route: 067
     Dates: start: 20211211, end: 20211221

REACTIONS (3)
  - Vaginal haemorrhage [Recovered/Resolved]
  - Abdominal discomfort [Recovering/Resolving]
  - Pelvic pain [Recovering/Resolving]

NARRATIVE: CASE EVENT DATE: 20211201
